FAERS Safety Report 21202273 (Version 1)
Quarter: 2022Q3

REPORT INFORMATION
  Report Type: Report from Study
  Country: TH (occurrence: TH)
  Receive Date: 20220811
  Receipt Date: 20220811
  Transmission Date: 20221027
  Serious: Yes (Death, Hospitalization)
  Sender: FDA-Public Use
  Company Number: TH-BAYER-2022A107479

PATIENT
  Age: 86 Year
  Sex: Male

DRUGS (1)
  1. NEXAVAR [Suspect]
     Active Substance: SORAFENIB
     Indication: Hepatocellular carcinoma
     Dosage: 200 MG, BID

REACTIONS (6)
  - Hepatocellular carcinoma [Fatal]
  - Nausea [None]
  - Vomiting [None]
  - Diarrhoea [None]
  - Hypotension [None]
  - Off label use [None]

NARRATIVE: CASE EVENT DATE: 20220608
